FAERS Safety Report 23577307 (Version 3)
Quarter: 2024Q1

REPORT INFORMATION
  Report Type: Spontaneous
  Country: ES (occurrence: ES)
  Receive Date: 20240228
  Receipt Date: 20240321
  Transmission Date: 20240410
  Serious: Yes (Hospitalization)
  Sender: FDA-Public Use
  Company Number: ES-Eisai-EC-2024-160122

PATIENT
  Age: 14 Year
  Sex: Male
  Weight: 80.4 kg

DRUGS (3)
  1. FYCOMPA [Suspect]
     Active Substance: PERAMPANEL
     Indication: Generalised tonic-clonic seizure
     Route: 048
     Dates: start: 20220214
  2. VALPROIC ACID [Suspect]
     Active Substance: VALPROIC ACID
     Indication: Generalised tonic-clonic seizure
     Dosage: DOSE AND FREQUENCY UNKNOWN.
     Route: 065
  3. LEVETIRACETAM [Concomitant]
     Active Substance: LEVETIRACETAM
     Indication: Generalised tonic-clonic seizure
     Route: 065
     Dates: start: 20210916

REACTIONS (1)
  - Epileptic psychosis [Not Recovered/Not Resolved]

NARRATIVE: CASE EVENT DATE: 20240110
